FAERS Safety Report 4336706-2 (Version None)
Quarter: 2004Q2

REPORT INFORMATION
  Report Type: 
  Country: None (occurrence: None)
  Receive Date: 20040412
  Receipt Date: 20040406
  Transmission Date: 20050107
  Serious: Yes (Other)
  Sender: FDA-Public Use
  Company Number: US-BRISTOL-MYERS SQUIBB COMPANY-12552949

PATIENT
  Age: 46 Year
  Sex: Male
  Weight: 91 kg

DRUGS (3)
  1. BUSPAR [Suspect]
     Indication: INSOMNIA
     Route: 048
  2. BUSPAR [Suspect]
     Indication: ANXIETY
     Route: 048
  3. VALIUM [Concomitant]

REACTIONS (2)
  - INSOMNIA [None]
  - RENAL FAILURE [None]
